FAERS Safety Report 14977016 (Version 1)
Quarter: 2018Q2

REPORT INFORMATION
  Report Type: Spontaneous
  Country: US (occurrence: US)
  Receive Date: 20180605
  Receipt Date: 20180605
  Transmission Date: 20180711
  Serious: Yes (Hospitalization)
  Sender: FDA-Public Use
  Company Number: US-SUN PHARMACEUTICAL INDUSTRIES LTD-2018US-174717

PATIENT
  Age: 73 Year
  Sex: Female

DRUGS (1)
  1. CARBIDOPA AND LEVODOPA [Suspect]
     Active Substance: CARBIDOPA\LEVODOPA
     Indication: PARKINSON^S DISEASE
     Route: 065

REACTIONS (5)
  - Hallucination [Recovering/Resolving]
  - Depression [Recovering/Resolving]
  - Dementia [Recovering/Resolving]
  - Catatonia [Recovering/Resolving]
  - Loss of consciousness [Recovering/Resolving]
